FAERS Safety Report 4348001-6 (Version None)
Quarter: 2004Q2

REPORT INFORMATION
  Report Type: 
  Country: None (occurrence: None)
  Receive Date: 20040422
  Receipt Date: 20040413
  Transmission Date: 20050107
  Serious: Yes (Death)
  Sender: FDA-Public Use
  Company Number: 2004209282BR

PATIENT
  Age: 63 Year
  Sex: Female

DRUGS (1)
  1. CELEBREX [Suspect]
     Indication: ARTHRITIS
     Dosage: 100 MG, QD, ORAL
     Route: 048
     Dates: start: 20010713

REACTIONS (2)
  - CARCINOMA [None]
  - MULTI-ORGAN FAILURE [None]
